FAERS Safety Report 24049537 (Version 4)
Quarter: 2024Q3

REPORT INFORMATION
  Report Type: Spontaneous
  Country: ES (occurrence: ES)
  Receive Date: 20240704
  Receipt Date: 20240903
  Transmission Date: 20241017
  Serious: Yes (Hospitalization)
  Sender: AUROBINDO
  Company Number: ES-JNJFOC-20240646658

PATIENT
  Age: 85 Year
  Sex: Male
  Weight: 85 kg

DRUGS (47)
  1. BORTEZOMIB [Suspect]
     Active Substance: BORTEZOMIB
     Indication: Plasma cell myeloma
     Dosage: UNK (INITIAL 1.3 MG/M2CURRENT 0.7 MG/M2)
     Route: 058
     Dates: start: 20210531, end: 20240603
  2. DARZALEX [Suspect]
     Active Substance: DARATUMUMAB
     Indication: Plasma cell myeloma
     Dosage: 1800 MILLIGRAM (EVERY MONTH)
     Route: 058
     Dates: start: 20210531, end: 20240520
  3. LEVOTHYROXINE SODIUM [Concomitant]
     Active Substance: LEVOTHYROXINE SODIUM
     Indication: Hypothyroidism
     Dosage: 112 MICROGRAM, ONCE A DAY
     Route: 048
     Dates: start: 1998
  4. LEVOTHYROXINE SODIUM [Concomitant]
     Active Substance: LEVOTHYROXINE SODIUM
     Dosage: 112 MICROGRAM, ONCE A DAY
     Route: 048
     Dates: start: 20200205
  5. ALPRAZOLAM [Concomitant]
     Active Substance: ALPRAZOLAM
     Indication: Prophylaxis
     Dosage: 1 MILLIGRAM, ONCE A DAY
     Route: 048
     Dates: start: 20210714
  6. ALPRAZOLAM [Concomitant]
     Active Substance: ALPRAZOLAM
     Dosage: 0.25 MILLIGRAM, TWO TIMES A DAY
     Route: 048
     Dates: start: 20240626
  7. ALPRAZOLAM [Concomitant]
     Active Substance: ALPRAZOLAM
     Dosage: 0.25 MG1 MG
     Route: 065
     Dates: start: 20240709
  8. CALCIUM CARBONATE [Concomitant]
     Active Substance: CALCIUM CARBONATE
     Indication: Prophylaxis
     Dosage: 1500 MILLIGRAM, TWO TIMES A DAY
     Route: 048
     Dates: start: 20210714
  9. CALCIUM CARBONATE [Concomitant]
     Active Substance: CALCIUM CARBONATE
     Dosage: 1500 MILLIGRAM, TWO TIMES A DAY
     Route: 048
     Dates: start: 20240709
  10. CHOLECALCIFEROL [Concomitant]
     Active Substance: CHOLECALCIFEROL
     Indication: Prophylaxis
     Dosage: 400 INTERNATIONAL UNIT, TWO TIMES A DAY
     Route: 048
     Dates: start: 20210714
  11. OMEPRAZOLE [Concomitant]
     Active Substance: OMEPRAZOLE
     Indication: Gastrointestinal disorder therapy
     Dosage: 20 MILLIGRAM, ONCE A DAY
     Route: 048
     Dates: start: 20210714
  12. ACYCLOVIR [Concomitant]
     Active Substance: ACYCLOVIR
     Indication: Prophylaxis
     Dosage: 800 MILLIGRAM, ONCE A DAY
     Route: 048
     Dates: start: 20210820
  13. CYANOCOBALAMIN [Concomitant]
     Active Substance: CYANOCOBALAMIN
     Indication: Nutritional supplementation
     Dosage: 0.5 MILLIGRAM, ONCE A DAY
     Route: 048
     Dates: start: 20211116
  14. PYRIDOXINE [Concomitant]
     Active Substance: PYRIDOXINE
     Indication: Nutritional supplementation
     Dosage: 250 MILLIGRAM, ONCE A DAY
     Route: 048
     Dates: start: 20211116
  15. THIAMINE [Concomitant]
     Active Substance: THIAMINE
     Indication: Nutritional supplementation
     Dosage: 250 MILLIGRAM, ONCE A DAY
     Route: 048
     Dates: start: 20211116
  16. NALOXONE [Concomitant]
     Active Substance: NALOXONE
     Indication: Pain
     Dosage: 10 MILLIGRAM, TWO TIMES A DAY
     Route: 048
     Dates: start: 20220223
  17. NALOXONE [Concomitant]
     Active Substance: NALOXONE
     Dosage: 10 MILLIGRAM, TWO TIMES A DAY
     Route: 048
     Dates: start: 20240709
  18. OXYCODONE [Concomitant]
     Active Substance: OXYCODONE
     Indication: Pain
     Dosage: 20 MILLIGRAM, TWO TIMES A DAY
     Route: 048
     Dates: start: 20220223
  19. OXYCODONE [Concomitant]
     Active Substance: OXYCODONE
     Dosage: 5 MILLIGRAM
     Dates: start: 20210830
  20. OXYCODONE [Concomitant]
     Active Substance: OXYCODONE
     Dosage: 20 MILLIGRAM, TWO TIMES A DAY
     Route: 048
     Dates: start: 20240707
  21. OXYCODONE [Concomitant]
     Active Substance: OXYCODONE
     Dosage: 5 MILLIGRAM
     Route: 048
     Dates: start: 20240626
  22. DOMPERIDONE [Concomitant]
     Active Substance: DOMPERIDONE
     Indication: Gastrointestinal disorder therapy
     Dosage: 10 MILLIGRAM (0.33 PER DAY)
     Route: 048
     Dates: start: 20220927
  23. DOMPERIDONE [Concomitant]
     Active Substance: DOMPERIDONE
     Dosage: 200 MILLIGRAM, 3 TIMES A DAY
     Route: 065
     Dates: start: 20240407, end: 20240709
  24. DOMPERIDONE [Concomitant]
     Active Substance: DOMPERIDONE
     Dosage: 10 MILLIGRAM
     Route: 065
     Dates: start: 20240709
  25. CHONDROITIN SULFATE (BOVINE) [Concomitant]
     Active Substance: CHONDROITIN SULFATE (BOVINE)
     Indication: Osteoarthritis
     Dosage: 200 MILLIGRAM, EVERY FOUR HOUR
     Route: 048
     Dates: start: 20240321, end: 20240616
  26. CHONDROITIN SULFATE (BOVINE) [Concomitant]
     Active Substance: CHONDROITIN SULFATE (BOVINE)
     Indication: Prophylaxis
     Dosage: 800 MILLIGRAM, TWO TIMES A DAY
     Route: 048
     Dates: start: 20240626
  27. CHONDROITIN SULFATE (BOVINE) [Concomitant]
     Active Substance: CHONDROITIN SULFATE (BOVINE)
     Dosage: 800 MILLIGRAM, ONCE A DAY
     Route: 048
     Dates: start: 20240709
  28. EBASTINE [Concomitant]
     Active Substance: EBASTINE
     Indication: Neuropathy peripheral
     Dosage: 10 MILLIGRAM, ONCE A DAY
     Route: 048
     Dates: start: 20240321, end: 20240616
  29. GLUCOSAMINE [Concomitant]
     Active Substance: GLUCOSAMINE
     Indication: Osteoarthritis
     Dosage: 250 MILLIGRAM, EVERY FOUR HOUR
     Route: 048
     Dates: start: 20240416, end: 20240616
  30. ONDANSETRON [Concomitant]
     Active Substance: ONDANSETRON
     Indication: Nausea
     Dosage: 4 MILLIGRAM, AS NECESSARY
     Route: 042
     Dates: start: 20240617
  31. ONDANSETRON [Concomitant]
     Active Substance: ONDANSETRON
     Indication: Vomiting
  32. PREGABALIN [Concomitant]
     Active Substance: PREGABALIN
     Indication: Pain prophylaxis
     Dosage: 25 MILLIGRAM, 0.33 DAY
     Route: 048
     Dates: start: 20240618
  33. PREGABALIN [Concomitant]
     Active Substance: PREGABALIN
     Dosage: 25 MILLIGRAM, 0.33 DAY
     Route: 048
     Dates: start: 20240709
  34. PREGABALIN [Concomitant]
     Active Substance: PREGABALIN
     Dosage: 25 MILLIGRAM, 0.33 DAY
     Route: 048
     Dates: start: 20240704
  35. IRBESARTAN [Concomitant]
     Active Substance: IRBESARTAN
     Indication: Hypertension
     Dosage: 150 MILLIGRAM, ONCE A DAY
     Route: 048
     Dates: start: 20210419
  36. IRBESARTAN [Concomitant]
     Active Substance: IRBESARTAN
     Dosage: 150 MILLIGRAM, ONCE A DAY
     Route: 048
     Dates: start: 20240709
  37. FLURAZEPAM HYDROCHLORIDE [Concomitant]
     Active Substance: FLURAZEPAM HYDROCHLORIDE
     Indication: Sleep disorder therapy
     Dosage: 30 MILLIGRAM, ONCE A DAY
     Route: 048
     Dates: start: 20240626
  38. FLURAZEPAM HYDROCHLORIDE [Concomitant]
     Active Substance: FLURAZEPAM HYDROCHLORIDE
     Dosage: 30 MILLIGRAM, ONCE A DAY
     Route: 048
     Dates: start: 20240709
  39. FUROSEMIDE [Concomitant]
     Active Substance: FUROSEMIDE
     Indication: Prophylaxis
     Dosage: 20 MILLIGRAM, ONCE A DAY
     Route: 042
     Dates: start: 20240618
  40. POTASSIUM PHOSPHATE, MONOBASIC [Concomitant]
     Active Substance: POTASSIUM PHOSPHATE, MONOBASIC
     Indication: Hypophosphataemia
     Dosage: 20 MILLIEQUIVALENT, ONCE A DAY
     Route: 042
     Dates: start: 20240621
  41. HYDROCHLOROTHIAZIDE [Concomitant]
     Active Substance: HYDROCHLOROTHIAZIDE
     Indication: Hypertension
     Dosage: 12.5 MILLIGRAM, ONCE A DAY
     Route: 048
     Dates: start: 20210419
  42. HYDROCHLOROTHIAZIDE [Concomitant]
     Active Substance: HYDROCHLOROTHIAZIDE
     Dosage: 12.5 MILLIGRAM, ONCE A DAY
     Route: 048
     Dates: start: 20240617, end: 20240626
  43. MAGNESIUM SULFATE [Concomitant]
     Active Substance: MAGNESIUM SULFATE\MAGNESIUM SULFATE HEPTAHYDRATE
     Indication: Hypomagnesaemia
     Dosage: 1.5 GRAM, ONCE A DAY
     Route: 042
     Dates: start: 20240618
  44. LACTULOSE [Concomitant]
     Active Substance: LACTULOSE
     Indication: Gastrointestinal disorder therapy
     Dosage: 10 GRAM0.33 DAY
     Route: 048
     Dates: start: 20240622
  45. LOSARTAN [Concomitant]
     Active Substance: LOSARTAN\LOSARTAN POTASSIUM
     Indication: Hypertension
     Dosage: 50 MILLIGRAM
     Route: 048
     Dates: start: 20240704, end: 20240709
  46. CALCIUM PIDOLATE [Concomitant]
     Active Substance: CALCIUM PIDOLATE
     Indication: Prophylaxis
     Dosage: 4500 MILLIGRAM, ONCE A DAY
     Route: 048
     Dates: start: 20240704
  47. LORMETAZEPAM [Concomitant]
     Active Substance: LORMETAZEPAM
     Indication: Sleep disorder therapy
     Dosage: 1 MILLIGRAM, ONCE A DAY
     Route: 048
     Dates: start: 20240704, end: 20240709

REACTIONS (2)
  - COVID-19 [Recovered/Resolved]
  - Respiratory tract infection [Recovered/Resolved]

NARRATIVE: CASE EVENT DATE: 20240616
